FAERS Safety Report 9958616 (Version 4)
Quarter: 2014Q2

REPORT INFORMATION
  Report Type: Spontaneous
  Country: US (occurrence: US)
  Receive Date: 20140305
  Receipt Date: 20140407
  Transmission Date: 20141212
  Serious: Yes (Other)
  Sender: FDA-Public Use
  Company Number: US-JNJFOC-20131211704

PATIENT
  Age: 1 Year
  Sex: Female
  Weight: 11.5 kg

DRUGS (4)
  1. TYLENOL INFANTS ORAL SUSPENSION GRAPE [Suspect]
     Indication: COUGH
     Dosage: AS PRESCRIBED ON THE INSTRUCTIONS
     Route: 065
     Dates: start: 20131205
  2. TYLENOL INFANTS ORAL SUSPENSION GRAPE [Suspect]
     Indication: PYREXIA
     Dosage: AS PRESCRIBED ON THE INSTRUCTIONS
     Route: 065
     Dates: start: 20131205
  3. ALBUTEROL [Concomitant]
     Route: 065
  4. AMOXICILLIN [Concomitant]
     Route: 065

REACTIONS (4)
  - Hyperthermia [Recovered/Resolved]
  - Agitation [Recovered/Resolved]
  - Expired product administered [Unknown]
  - Drug ineffective [Unknown]
